FAERS Safety Report 11153845 (Version 1)
Quarter: 2015Q2

REPORT INFORMATION
  Report Type: Spontaneous
  Country: US (occurrence: US)
  Receive Date: 20150602
  Receipt Date: 20150602
  Transmission Date: 20150821
  Serious: No
  Sender: FDA-Public Use
  Company Number: US-NOVEN PHARMACEUTICALS, INC.-14US009944

PATIENT
  Sex: Male

DRUGS (1)
  1. DAYTRANA [Suspect]
     Active Substance: METHYLPHENIDATE
     Indication: ATTENTION DEFICIT/HYPERACTIVITY DISORDER
     Dosage: 15 MG, CONSUMER IS CUTTING 30 PATCHES IN HALF
     Route: 062
     Dates: start: 201405

REACTIONS (5)
  - Application site rash [Recovering/Resolving]
  - Application site erythema [Recovering/Resolving]
  - Drug administered at inappropriate site [Unknown]
  - Wrong technique in drug usage process [Unknown]
  - Off label use [Not Recovered/Not Resolved]

NARRATIVE: CASE EVENT DATE: 2014
